FAERS Safety Report 25356354 (Version 1)
Quarter: 2025Q2

REPORT INFORMATION
  Report Type: Spontaneous
  Country: US (occurrence: US)
  Receive Date: 20250526
  Receipt Date: 20250526
  Transmission Date: 20250717
  Serious: No
  Sender: SANOFI AVENTIS
  Company Number: US-SA-2025SA146527

PATIENT
  Sex: Male

DRUGS (21)
  1. DUPIXENT [Suspect]
     Active Substance: DUPILUMAB
     Indication: Dermatitis allergic
     Dosage: 300 MG, QOW
     Route: 058
     Dates: start: 20230927
  2. AZITHROMYCIN [Concomitant]
     Active Substance: AZITHROMYCIN
  3. BENZONATATE [Concomitant]
     Active Substance: BENZONATATE
  4. BOOSTRIX [Concomitant]
     Active Substance: TETANUS TOXOID, REDUCED DIPHTHERIA TOXOID AND ACELLULAR PERTUSSIS VACCINE, ADSORBED ANTIGENS
  5. CEPHALEXIN [Concomitant]
     Active Substance: CEPHALEXIN
  6. CLINDAMYCIN [Concomitant]
     Active Substance: CLINDAMYCIN
  7. CLOBETASOL [Concomitant]
     Active Substance: CLOBETASOL
  8. DESONIDE [Concomitant]
     Active Substance: DESONIDE
  9. DOXYCYCLINE [Concomitant]
     Active Substance: DOXYCYCLINE
  10. METFORMIN [Concomitant]
     Active Substance: METFORMIN HYDROCHLORIDE
  11. METOPROLOL [Concomitant]
     Active Substance: METOPROLOL
  12. MUPIROCIN [Concomitant]
     Active Substance: MUPIROCIN
  13. NITROGLYCERIN [Concomitant]
     Active Substance: NITROGLYCERIN
  14. PREDNISONE [Concomitant]
     Active Substance: PREDNISONE
  15. PREDNISONE [Concomitant]
     Active Substance: PREDNISONE
  16. TACROLIMUS [Concomitant]
     Active Substance: TACROLIMUS
  17. TRIAMCINOLONE [Concomitant]
     Active Substance: TRIAMCINOLONE
  18. PREVNAR [Concomitant]
     Active Substance: PNEUMOCOCCAL 7-VALENT CONJUGATE VACCINE (DIPHTHERIA CRM197 PROTEIN)
  19. OFLOXACIN [Concomitant]
     Active Substance: OFLOXACIN
  20. ACETAMINOPHEN\HYDROCODONE [Concomitant]
     Active Substance: ACETAMINOPHEN\HYDROCODONE
  21. NEOMYCIN AND POLYMYXIN B SULFATES AND HYDROCORTISONE [Concomitant]
     Active Substance: HYDROCORTISONE\NEOMYCIN SULFATE\POLYMYXIN B SULFATE

REACTIONS (3)
  - Skin discomfort [Unknown]
  - Sleep disorder due to a general medical condition [Unknown]
  - Rash [Unknown]
